FAERS Safety Report 6550514-3 (Version None)
Quarter: 2010Q1

REPORT INFORMATION
  Report Type: 
  Country: None (occurrence: None)
  Receive Date: 20100125
  Receipt Date: 20100115
  Transmission Date: 20100710
  Serious: Yes (Life-Threatening, Hospitalization)
  Sender: FDA-Public Use
  Company Number: B0619353A

PATIENT
  Age: 87 Year
  Sex: Female
  Weight: 45 kg

DRUGS (9)
  1. ARIXTRA [Suspect]
     Indication: PHLEBITIS
     Dosage: 5MG PER DAY
     Route: 058
     Dates: start: 20091206, end: 20091214
  2. FLECTOR [Suspect]
     Indication: TENDONITIS
     Route: 048
     Dates: start: 20091206, end: 20091214
  3. BIPROFENID [Suspect]
     Route: 048
     Dates: start: 20091201, end: 20091201
  4. PLAVIX [Suspect]
     Route: 048
     Dates: end: 20091214
  5. FUROSEMIDE [Concomitant]
  6. HEMIGOXINE [Concomitant]
     Route: 065
  7. VASTAREL [Concomitant]
     Indication: DRUG USE FOR UNKNOWN INDICATION
     Route: 065
  8. FENOFIBRATE [Concomitant]
     Indication: DRUG USE FOR UNKNOWN INDICATION
     Route: 065
  9. INNOHEP [Concomitant]
     Indication: PHLEBITIS
     Route: 065
     Dates: start: 20091201, end: 20091201

REACTIONS (5)
  - ANAEMIA [None]
  - HAEMATOMA [None]
  - HAEMORRHAGE [None]
  - LOSS OF CONSCIOUSNESS [None]
  - OEDEMA PERIPHERAL [None]
